FAERS Safety Report 12571152 (Version 7)
Quarter: 2018Q1

REPORT INFORMATION
  Report Type: Spontaneous
  Country: CA (occurrence: CA)
  Receive Date: 20160719
  Receipt Date: 20180214
  Transmission Date: 20180508
  Serious: Yes (Other)
  Sender: FDA-Public Use
  Company Number: CA-PFIZER INC-2016324063

PATIENT
  Age: 85 Year
  Sex: Male

DRUGS (11)
  1. PANTOLOC [Interacting]
     Active Substance: PANTOPRAZOLE SODIUM
     Dosage: UNK
     Route: 065
  2. WARFARIN [Suspect]
     Active Substance: WARFARIN
     Indication: ATRIAL FIBRILLATION
     Dosage: UNK
     Route: 065
  3. ELIQUIS [Interacting]
     Active Substance: APIXABAN
     Indication: CEREBROVASCULAR ACCIDENT PROPHYLAXIS
     Dosage: 5 MG, 2X/DAY
     Route: 065
     Dates: start: 201503
  4. DABIGATRAN [Suspect]
     Active Substance: DABIGATRAN
     Indication: ATRIAL FIBRILLATION
     Dosage: UNK UNK, 2X/DAY
     Route: 065
  5. DABIGATRAN [Suspect]
     Active Substance: DABIGATRAN
     Dosage: UNK, QD
  6. ATORVASTATIN CALCIUM. [Suspect]
     Active Substance: ATORVASTATIN CALCIUM
     Dosage: UNK
     Route: 065
  7. VITAMINS /00067501/ [Suspect]
     Active Substance: VITAMINS
     Dosage: UNK
     Route: 065
  8. METOPROLOL. [Suspect]
     Active Substance: METOPROLOL
     Dosage: UNK
     Route: 065
  9. ASA [Suspect]
     Active Substance: ASPIRIN
     Dosage: UNK
     Route: 065
  10. ELIQUIS [Interacting]
     Active Substance: APIXABAN
     Dosage: 5 MG, 2X/DAY
     Route: 065
     Dates: start: 201604
  11. PRADAX [Suspect]
     Active Substance: DABIGATRAN ETEXILATE MESYLATE
     Indication: ATRIAL FIBRILLATION
     Dosage: UNK, QD

REACTIONS (3)
  - Cerebrovascular accident [Unknown]
  - Drug interaction [Unknown]
  - Treatment failure [Unknown]
